FAERS Safety Report 5398436-8 (Version None)
Quarter: 2007Q3

REPORT INFORMATION
  Report Type: 
  Country: None (occurrence: None)
  Receive Date: 20070724
  Receipt Date: 20070702
  Transmission Date: 20080115
  Serious: Yes (Other)
  Sender: FDA-Public Use
  Company Number: E2020-01354-SPO-GB

PATIENT
  Age: 58 Year
  Sex: Male

DRUGS (5)
  1. ARICEPT [Suspect]
     Indication: DEMENTIA
     Dosage: 5 MG, 1 IN 1 D, ORAL
     Route: 048
     Dates: start: 20050101, end: 20070614
  2. CITALOPRAM HYDROBROMIDE [Concomitant]
  3. LANSOPRAZOLE [Concomitant]
  4. HELOPERIDOL             (HALOPERIDOL) [Concomitant]
  5. LACTULOSE [Concomitant]

REACTIONS (4)
  - BLOOD TEST ABNORMAL [None]
  - NAUSEA [None]
  - NEUTROPHIL COUNT ABNORMAL [None]
  - VOMITING [None]
